FAERS Safety Report 9644535 (Version 1)
Quarter: 2013Q4

REPORT INFORMATION
  Report Type: Spontaneous
  Country: US (occurrence: US)
  Receive Date: 20131025
  Receipt Date: 20131025
  Transmission Date: 20140711
  Serious: Yes (Hospitalization, Other)
  Sender: FDA-Public Use
  Company Number: US-AMGEN-USASP2013074471

PATIENT
  Age: 56 Year
  Sex: Male

DRUGS (2)
  1. ENBREL [Suspect]
     Indication: PSORIATIC ARTHROPATHY
     Dosage: 50 MG, QWK
     Route: 065
     Dates: start: 20020615, end: 201305
  2. ENBREL [Suspect]
     Indication: PSORIASIS

REACTIONS (20)
  - Diverticulitis [Recovered/Resolved]
  - Foot fracture [Recovered/Resolved]
  - Cyst [Not Recovered/Not Resolved]
  - Finger deformity [Not Recovered/Not Resolved]
  - Intestinal perforation [Recovered/Resolved]
  - Psoriatic arthropathy [Recovered/Resolved]
  - Malaise [Recovered/Resolved]
  - Pain in extremity [Not Recovered/Not Resolved]
  - Visual impairment [Not Recovered/Not Resolved]
  - Arthralgia [Not Recovered/Not Resolved]
  - Skin haemorrhage [Not Recovered/Not Resolved]
  - Skin disorder [Not Recovered/Not Resolved]
  - Mobility decreased [Not Recovered/Not Resolved]
  - Onychalgia [Recovered/Resolved]
  - Nail disorder [Recovered/Resolved]
  - Gastrointestinal pain [Recovered/Resolved]
  - Skin ulcer [Recovered/Resolved]
  - Impaired healing [Recovered/Resolved]
  - Staphylococcal infection [Not Recovered/Not Resolved]
  - Localised infection [Not Recovered/Not Resolved]
